FAERS Safety Report 4542953-7 (Version None)
Quarter: 2004Q4

REPORT INFORMATION
  Report Type: 
  Country: None (occurrence: None)
  Receive Date: 20041229
  Receipt Date: 20041216
  Transmission Date: 20050328
  Serious: Yes (Other)
  Sender: FDA-Public Use
  Company Number: 2004-00945

PATIENT
  Sex: Female

DRUGS (9)
  1. VELCADE [Suspect]
     Indication: MULTIPLE MYELOMA
     Dates: start: 20040501, end: 20040701
  2. ZOMETA [Concomitant]
  3. ZOLOFT [Concomitant]
  4. ZOFRAN [Concomitant]
  5. CALCIUM (CALCIUM) [Concomitant]
  6. VITAMIN D [Concomitant]
  7. MORPHINE SULFATE [Concomitant]
  8. INSULIN [Concomitant]
  9. DEXAMETHASONE [Concomitant]

REACTIONS (1)
  - EJECTION FRACTION DECREASED [None]
